FAERS Safety Report 9724483 (Version 2)
Quarter: 2013Q4

REPORT INFORMATION
  Report Type: Spontaneous
  Country: US (occurrence: US)
  Receive Date: 20131202
  Receipt Date: 20131202
  Transmission Date: 20140711
  Serious: No
  Sender: FDA-Public Use
  Company Number: US-AMGEN-USASP2013077945

PATIENT
  Age: 66 Year
  Sex: Male
  Weight: 94.3 kg

DRUGS (7)
  1. ENBREL [Suspect]
     Indication: ANKYLOSING SPONDYLITIS
     Dosage: 50 MG, QWK
     Route: 058
     Dates: start: 20130809
  2. PREDNISONE [Concomitant]
     Indication: RHEUMATOID ARTHRITIS
     Dosage: 20 MG, QD
     Route: 048
  3. FERROUS SULFATE [Concomitant]
     Indication: MINERAL SUPPLEMENTATION
     Dosage: 325 MG, QD
     Route: 048
  4. GEMFIBROZIL [Concomitant]
     Indication: LIPIDS ABNORMAL
     Dosage: 600 MG, QD
     Route: 048
  5. HYDROCHLOROTHIAZIDE [Concomitant]
     Indication: HYPERTENSION
     Dosage: 12.5 MG, QD
     Route: 048
  6. NIFEDIPINE [Concomitant]
     Indication: HYPERTENSION
     Dosage: 30 MG, TID
     Route: 048
  7. TRAMADOL [Concomitant]
     Indication: PAIN
     Dosage: 50 MG, EVERY 8 HRS
     Route: 048

REACTIONS (1)
  - Nasopharyngitis [Not Recovered/Not Resolved]
